FAERS Safety Report 13378313 (Version 1)
Quarter: 2017Q1

REPORT INFORMATION
  Report Type: Spontaneous
  Country: US (occurrence: US)
  Receive Date: 20170328
  Receipt Date: 20170328
  Transmission Date: 20170429
  Serious: No
  Sender: FDA-Public Use
  Company Number: US-TAIHO ONCOLOGY INC-EU-2017-00501

PATIENT
  Age: 78 Year
  Sex: Female
  Weight: 54.93 kg

DRUGS (2)
  1. STIVARGA [Concomitant]
     Active Substance: REGORAFENIB
     Indication: COLON CANCER
     Route: 048
     Dates: start: 20161120, end: 201702
  2. LONSURF [Suspect]
     Active Substance: TIPIRACIL HYDROCHLORIDE\TRIFLURIDINE
     Indication: COLON CANCER METASTATIC
     Route: 048
     Dates: start: 20170228

REACTIONS (1)
  - Disease progression [Recovered/Resolved]

NARRATIVE: CASE EVENT DATE: 20170313
